FAERS Safety Report 14788244 (Version 1)
Quarter: 2018Q2

REPORT INFORMATION
  Report Type: Spontaneous
  Country: US (occurrence: US)
  Receive Date: 20180423
  Receipt Date: 20180423
  Transmission Date: 20180711
  Serious: No
  Sender: FDA-Public Use
  Company Number: US-ASTRAZENECA-2018SE39928

PATIENT
  Age: 27836 Day
  Sex: Male
  Weight: 79.8 kg

DRUGS (2)
  1. BYDUREON [Suspect]
     Active Substance: EXENATIDE
     Indication: TYPE 2 DIABETES MELLITUS
     Route: 058
     Dates: start: 20180322
  2. LANTUS [Concomitant]
     Active Substance: INSULIN GLARGINE

REACTIONS (6)
  - Drug ineffective [Not Recovered/Not Resolved]
  - Chest discomfort [Unknown]
  - Blood glucose increased [Not Recovered/Not Resolved]
  - Fatigue [Not Recovered/Not Resolved]
  - Joint stiffness [Not Recovered/Not Resolved]
  - Headache [Not Recovered/Not Resolved]

NARRATIVE: CASE EVENT DATE: 20180325
